FAERS Safety Report 12903359 (Version 5)
Quarter: 2017Q2

REPORT INFORMATION
  Report Type: Spontaneous
  Country: JP (occurrence: JP)
  Receive Date: 20161102
  Receipt Date: 20170410
  Transmission Date: 20170830
  Serious: Yes (Other)
  Sender: FDA-Public Use
  Company Number: JP-OTSUKA-2016_025445AA

PATIENT
  Age: 66 Year
  Sex: Female

DRUGS (7)
  1. SAMSCA [Suspect]
     Active Substance: TOLVAPTAN
     Dosage: 37.5 MG, DAILY DOSE
     Route: 048
     Dates: start: 20160608, end: 20160621
  2. SAMSCA [Suspect]
     Active Substance: TOLVAPTAN
     Dosage: 30 MG, DAILY DOSE
     Route: 048
     Dates: start: 20160517, end: 20160607
  3. SAMSCA 30 MG [Suspect]
     Active Substance: TOLVAPTAN
     Indication: CONGENITAL CYSTIC KIDNEY DISEASE
     Dosage: 30 MG, DAILY DOSE
     Route: 048
     Dates: start: 20160721, end: 20161026
  4. SAMSCA 30 MG [Suspect]
     Active Substance: TOLVAPTAN
     Dosage: 30 MG, DAILY DOSE
     Route: 048
     Dates: start: 20160707, end: 20160720
  5. SAMSCA 30 MG [Suspect]
     Active Substance: TOLVAPTAN
     Dosage: 45 MG, DAILY DOSE
     Route: 048
     Dates: start: 20160622, end: 20160706
  6. SAMSCA [Suspect]
     Active Substance: TOLVAPTAN
     Indication: CONGENITAL CYSTIC KIDNEY DISEASE
     Dosage: 30 MG, DAILY DOSE
     Route: 048
     Dates: start: 20160721, end: 20161026
  7. SAMSCA [Suspect]
     Active Substance: TOLVAPTAN
     Dosage: 22.5 MG, DAILY DOSE
     Route: 048
     Dates: start: 20160707, end: 20160720

REACTIONS (1)
  - Hepatic function abnormal [Recovered/Resolved]

NARRATIVE: CASE EVENT DATE: 20161026
